FAERS Safety Report 7995868-6 (Version None)
Quarter: 2011Q4

REPORT INFORMATION
  Report Type: 
  Country: None (occurrence: None)
  Receive Date: 20111220
  Receipt Date: 20111209
  Transmission Date: 20120403
  Serious: Yes (Other)
  Sender: FDA-Public Use
  Company Number: KR-US-EMD SERONO, INC.-7074532

PATIENT
  Sex: Female

DRUGS (3)
  1. GONAL-F [Suspect]
     Indication: PRODUCT USED FOR UNKNOWN INDICATION
     Route: 058
     Dates: start: 20110321, end: 20110325
  2. LUVERIS [Concomitant]
     Indication: INFERTILITY FEMALE
     Route: 058
     Dates: start: 20110325, end: 20110402
  3. GONAL-F [Suspect]
     Route: 058
     Dates: start: 20110325, end: 20110402

REACTIONS (1)
  - ABORTION MISSED [None]
